FAERS Safety Report 6331625-4 (Version None)
Quarter: 2009Q3

REPORT INFORMATION
  Report Type: 
  Country: None (occurrence: None)
  Receive Date: 20090827
  Receipt Date: 20090820
  Transmission Date: 20100115
  Serious: Yes (Other)
  Sender: FDA-Public Use
  Company Number: PHHY2009BR35373

PATIENT
  Sex: Female
  Weight: 55 kg

DRUGS (3)
  1. FORASEQ [Suspect]
     Indication: ASTHMA
  2. FORASEQ [Suspect]
     Dosage: UNK
     Dates: start: 20090820
  3. PURAN T4 [Concomitant]
     Indication: HYPOTHYROIDISM
     Dosage: 1 DF, QD
     Route: 048

REACTIONS (1)
  - DYSPNOEA [None]
